FAERS Safety Report 9927413 (Version 4)
Quarter: 2014Q2

REPORT INFORMATION
  Report Type: Report from Study
  Country: AU (occurrence: AU)
  Receive Date: 20140226
  Receipt Date: 20140624
  Transmission Date: 20141212
  Serious: Yes (Other)
  Sender: FDA-Public Use
  Company Number: AU-AMGEN-AUSCT2014012763

PATIENT
  Age: 49 Year
  Sex: Female

DRUGS (1)
  1. PANITUMUMAB [Suspect]
     Indication: BILE DUCT CANCER
     Dosage: 810 MG, Q3WK
     Route: 042
     Dates: start: 20130722

REACTIONS (1)
  - Hypomagnesaemia [Recovering/Resolving]
